FAERS Safety Report 6932933-6 (Version None)
Quarter: 2010Q3

REPORT INFORMATION
  Report Type: 
  Country: None (occurrence: None)
  Receive Date: 20100819
  Receipt Date: 20100812
  Transmission Date: 20110219
  Serious: Yes (Death)
  Sender: FDA-Public Use
  Company Number: US-GILEAD-2010-0031059

PATIENT
  Sex: Male

DRUGS (8)
  1. LETAIRIS [Suspect]
     Indication: PULMONARY ARTERIAL HYPERTENSION
     Route: 048
     Dates: start: 20100311
  2. WARFARIN [Concomitant]
  3. LASIX [Concomitant]
  4. PLAVIX [Concomitant]
  5. DIGOXIN [Concomitant]
  6. METOPROLOL SUCCINATE [Concomitant]
  7. LEVOXYL [Concomitant]
  8. PEPCID [Concomitant]

REACTIONS (1)
  - PULMONARY ARTERIAL HYPERTENSION [None]
